FAERS Safety Report 21271350 (Version 1)
Quarter: 2022Q3

REPORT INFORMATION
  Report Type: Spontaneous
  Country: US (occurrence: US)
  Receive Date: 20220830
  Receipt Date: 20220830
  Transmission Date: 20221027
  Serious: Yes (Hospitalization, Other)
  Sender: FDA-Public Use
  Company Number: US-ACTELION-A-CH2020-200444

PATIENT
  Age: 35 Year
  Sex: Female

DRUGS (5)
  1. EPOPROSTENOL SODIUM [Suspect]
     Active Substance: EPOPROSTENOL SODIUM
     Indication: Pulmonary arterial hypertension
     Dosage: UNK
     Route: 042
  2. SILDENAFIL [Concomitant]
     Active Substance: SILDENAFIL
     Dosage: UNK
     Dates: end: 2015
  3. AMBRISENTAN [Concomitant]
     Active Substance: AMBRISENTAN
     Dosage: UNK
     Route: 065
  4. TREPROSTINIL [Concomitant]
     Active Substance: TREPROSTINIL
     Route: 055
  5. RIOCIGUAT [Concomitant]
     Active Substance: RIOCIGUAT
     Dosage: UNK

REACTIONS (10)
  - Goitre [Recovered/Resolved]
  - Superior vena cava syndrome [Unknown]
  - Thyroidectomy [Recovered/Resolved]
  - Optic ischaemic neuropathy [Unknown]
  - Silent thyroiditis [Unknown]
  - Swelling [Unknown]
  - Pain [Unknown]
  - Dysphagia [Unknown]
  - Dysphonia [Unknown]
  - Dyspnoea [Unknown]
